FAERS Safety Report 7729302-8 (Version None)
Quarter: 2011Q3

REPORT INFORMATION
  Report Type: 
  Country: None (occurrence: None)
  Receive Date: 20110906
  Receipt Date: 20110831
  Transmission Date: 20111222
  Serious: Yes (Hospitalization, Other)
  Sender: FDA-Public Use
  Company Number: US-JNJFOC-20110500361

PATIENT
  Sex: Male

DRUGS (2)
  1. LEVAQUIN [Suspect]
     Indication: SINUSITIS
     Route: 048
     Dates: start: 20090404, end: 20090407
  2. LEVAQUIN [Suspect]
     Route: 048

REACTIONS (5)
  - DISORIENTATION [None]
  - TENDON RUPTURE [None]
  - ROTATOR CUFF SYNDROME [None]
  - VISION BLURRED [None]
  - HYPERSENSITIVITY [None]
